FAERS Safety Report 23822583 (Version 1)
Quarter: 2024Q2

REPORT INFORMATION
  Report Type: Spontaneous
  Country: GB (occurrence: GB)
  Receive Date: 20240506
  Receipt Date: 20240506
  Transmission Date: 20240715
  Serious: Yes (Other)
  Sender: FDA-Public Use
  Company Number: None

PATIENT
  Age: 90 Year
  Sex: Female
  Weight: 71 kg

DRUGS (14)
  1. AMLODIPINE [Suspect]
     Active Substance: AMLODIPINE BESYLATE
     Indication: Ill-defined disorder
     Dosage: UNK
     Route: 065
     Dates: start: 20240430
  2. ALENDRONIC ACID [Concomitant]
     Active Substance: ALENDRONIC ACID
     Indication: Ill-defined disorder
     Dosage: 1 DOSAGE FORM, QW (SWALLOW ONE TABLET WHOLE ONCE WEEKLY, FIRST THI...)
     Route: 065
     Dates: start: 20240426
  3. AMLODIPINE [Concomitant]
     Active Substance: AMLODIPINE BESYLATE
     Indication: Hypertension
     Dosage: 1 DOSAGE FORM, QD (TAKE ONE TABLET DAILY TO LOWER BLOOD PRESSURE)
     Route: 065
     Dates: start: 20240404, end: 20240430
  4. BENDROFLUMETHIAZIDE [Concomitant]
     Active Substance: BENDROFLUMETHIAZIDE
     Indication: Hypertension
     Dosage: 1 DOSAGE FORM, QD (TAKE ONE TABLET DAILY FOR BLOOD PRESSURE)
     Route: 065
     Dates: start: 20230801
  5. BISOPROLOL [Concomitant]
     Active Substance: BISOPROLOL\BISOPROLOL FUMARATE
     Indication: Hypertension
     Dosage: 1 DOSAGE FORM, QD (TAKE ONE DAILY FOR BLOOD PRESSURE)
     Route: 065
     Dates: start: 20211006
  6. CALCIUM\CHOLECALCIFEROL [Concomitant]
     Active Substance: CALCIUM\CHOLECALCIFEROL
     Indication: Ill-defined disorder
     Dosage: 1 DOSAGE FORM, BID (CHEW ONE TABLET TWICE A DAY)
     Route: 065
     Dates: start: 20240426
  7. CODEINE PHOSPHATE [Concomitant]
     Active Substance: CODEINE PHOSPHATE
     Indication: Pain
     Dosage: 1 DOSAGE FORM (TAKE ONE TABLET UPTO FOUR TIMES DAILY, FOR PAIN)
     Route: 065
     Dates: start: 20240403
  8. LERCANIDIPINE HYDROCHLORIDE [Concomitant]
     Active Substance: LERCANIDIPINE HYDROCHLORIDE
     Indication: Hypertension
     Dosage: 1 DOSAGE FORM, QD (ONE TABLET ONCE DAILY TO REDUCE BLOOD PRESSURE)
     Route: 065
     Dates: start: 20230620, end: 20240404
  9. POLYETHYLENE GLYCOLS [Concomitant]
     Active Substance: POLYETHYLENE GLYCOLS
     Indication: Ill-defined disorder
     Dosage: 2 DOSAGE FORM, TID (TAKE THE CONTENTS OF TWO SACHETS THREE TIMES A DAY)
     Route: 065
     Dates: start: 20240426
  10. RIVAROXABAN [Concomitant]
     Active Substance: RIVAROXABAN
     Indication: Ill-defined disorder
     Dosage: 1 DOSAGE FORM, QD (TAKE ONE TABLET DAILY AT BREAKFAST)
     Route: 065
     Dates: start: 20211006
  11. ALBUTEROL [Concomitant]
     Active Substance: ALBUTEROL
     Indication: Ill-defined disorder
     Dosage: 2 DOSAGE FORM, QID (INHALE TWO PUFFS FOUR TIMES A DAY IF NEEDED FOR...)
     Route: 055
     Dates: start: 20211006
  12. SENNA [Concomitant]
     Active Substance: SENNA LEAF\SENNOSIDES\SENNOSIDES A AND B
     Indication: Ill-defined disorder
     Dosage: UNK, PM (ONE OR TWO TABLETS AT NIGHT TO PREVENT / TREAT)
     Route: 065
     Dates: start: 20240403
  13. SPIRIVA [Concomitant]
     Active Substance: TIOTROPIUM BROMIDE MONOHYDRATE
     Indication: Ill-defined disorder
     Dosage: 2 DOSAGE FORM, QD (INHALE TWO PUFFS ONCE A DAY)
     Route: 055
     Dates: start: 20220803
  14. SYMBICORT [Concomitant]
     Active Substance: BUDESONIDE\FORMOTEROL FUMARATE DIHYDRATE
     Indication: Ill-defined disorder
     Dosage: 2 DOSAGE FORM, BID (INHALE TWO PUFFS TWICE A DAY)
     Route: 055
     Dates: start: 20230620

REACTIONS (1)
  - Urinary retention [Recovered/Resolved]

NARRATIVE: CASE EVENT DATE: 20240430
